FAERS Safety Report 21230484 (Version 1)
Quarter: 2022Q3

REPORT INFORMATION
  Report Type: Report from Study
  Country: CA (occurrence: CA)
  Receive Date: 20220818
  Receipt Date: 20220818
  Transmission Date: 20221027
  Serious: Yes (Hospitalization)
  Sender: FDA-Public Use
  Company Number: CA-ABBVIE-22K-028-4508552-00

PATIENT
  Sex: Female

DRUGS (1)
  1. RINVOQ [Suspect]
     Active Substance: UPADACITINIB
     Indication: Rheumatoid arthritis
     Route: 048
     Dates: start: 20210427

REACTIONS (6)
  - Spinal fracture [Unknown]
  - Head injury [Unknown]
  - Balance disorder [Unknown]
  - Poor quality sleep [Unknown]
  - Pain [Unknown]
  - Hypophagia [Unknown]
